FAERS Safety Report 18755801 (Version 1)
Quarter: 2021Q1

REPORT INFORMATION
  Report Type: Spontaneous
  Country: US (occurrence: US)
  Receive Date: 20210119
  Receipt Date: 20210119
  Transmission Date: 20210419
  Serious: Yes (Hospitalization)
  Sender: FDA-Public Use
  Company Number: US-MYLANLABS-2021M1001775

PATIENT
  Age: 62 Year
  Sex: Female

DRUGS (2)
  1. LIRAGLUTIDE [Concomitant]
     Active Substance: LIRAGLUTIDE
     Indication: DIABETES MELLITUS
     Dosage: 1.2 MILLIGRAM, QD
     Route: 065
  2. METFORMIN [Suspect]
     Active Substance: METFORMIN HYDROCHLORIDE
     Indication: DIABETES MELLITUS
     Dosage: 1 GRAM, BID
     Route: 065

REACTIONS (8)
  - Hypoxia [Unknown]
  - Acute kidney injury [Unknown]
  - Hypothermia [Unknown]
  - Toxicity to various agents [Recovering/Resolving]
  - Hypotension [Unknown]
  - Mental status changes [Unknown]
  - Lactic acidosis [Recovering/Resolving]
  - Dysarthria [Unknown]
